FAERS Safety Report 18817717 (Version 5)
Quarter: 2021Q3

REPORT INFORMATION
  Report Type: Spontaneous
  Country: US (occurrence: US)
  Receive Date: 20210201
  Receipt Date: 20210723
  Transmission Date: 20211014
  Serious: No
  Sender: FDA-Public Use
  Company Number: US-MYLANLABS-2021M1006045

PATIENT

DRUGS (3)
  1. EPIPEN [Suspect]
     Active Substance: EPINEPHRINE
     Indication: PRODUCT USED FOR UNKNOWN INDICATION
     Dosage: 0.3 MILLIGRAM, PRN
     Route: 030
  2. EPIPEN [Suspect]
     Active Substance: EPINEPHRINE
     Dosage: 0.3 MILLIGRAM
  3. EPINEPHRINE INJECTION USP AUTO?INJECTOR [Suspect]
     Active Substance: EPINEPHRINE
     Indication: PRODUCT USED FOR UNKNOWN INDICATION
     Dosage: 0.3 MILLIGRAM, PRN
     Route: 030

REACTIONS (1)
  - Product quality issue [None]

NARRATIVE: CASE EVENT DATE: 20210128
